FAERS Safety Report 6684000-7 (Version None)
Quarter: 2010Q2

REPORT INFORMATION
  Report Type: 
  Country: None (occurrence: None)
  Receive Date: 20100408
  Receipt Date: 20091202
  Transmission Date: 20101027
  Serious: Yes (Hospitalization, Other)
  Sender: FDA-Public Use
  Company Number: E-09-492

PATIENT
  Sex: Male

DRUGS (5)
  1. ALPRAZOLAM [Suspect]
     Indication: ANXIETY
     Dosage: ONE P.O. B.I.D.
     Route: 048
  2. OXYCODONE HCL [Concomitant]
  3. OXYCONTIN [Concomitant]
  4. SOMA [Concomitant]
  5. CHONDROITIN [Concomitant]

REACTIONS (1)
  - CONVULSION [None]
